FAERS Safety Report 25720836 (Version 2)
Quarter: 2025Q3

REPORT INFORMATION
  Report Type: Spontaneous
  Country: US (occurrence: US)
  Receive Date: 20250825
  Receipt Date: 20250909
  Transmission Date: 20251020
  Serious: Yes (Other)
  Sender: TEVA
  Company Number: US-TEVA-VS-3364484

PATIENT
  Age: 74 Year
  Sex: Female

DRUGS (2)
  1. PREDNISOLONE [Suspect]
     Active Substance: PREDNISOLONE
     Indication: Corneal toxicity
     Route: 065
  2. MIRVETUXIMAB SORAVTANSINE [Suspect]
     Active Substance: MIRVETUXIMAB SORAVTANSINE
     Indication: Ovarian cancer metastatic
     Dosage: RECEIVED FOR 2.5 MONTHS
     Route: 065

REACTIONS (3)
  - Corneal toxicity [Not Recovered/Not Resolved]
  - Drug ineffective [Unknown]
  - Corneal deposits [Unknown]
